FAERS Safety Report 18258573 (Version 2)
Quarter: 2021Q1

REPORT INFORMATION
  Report Type: Report from Study
  Country: CO (occurrence: CO)
  Receive Date: 20200911
  Receipt Date: 20210211
  Transmission Date: 20210419
  Serious: Yes (Hospitalization)
  Sender: FDA-Public Use
  Company Number: NVSC2020CO235526

PATIENT
  Sex: Female

DRUGS (2)
  1. REVOLADE [Suspect]
     Active Substance: ELTROMBOPAG OLAMINE
     Indication: IMMUNE THROMBOCYTOPENIA
     Dosage: 50 MG, QD
     Route: 048
  2. REVOLADE [Suspect]
     Active Substance: ELTROMBOPAG OLAMINE
     Indication: THROMBOCYTOPENIC PURPURA

REACTIONS (4)
  - Infection [Unknown]
  - Renal pain [Not Recovered/Not Resolved]
  - Urinary tract infection [Recovering/Resolving]
  - Inflammation [Unknown]
